FAERS Safety Report 9652114 (Version 2)
Quarter: 2013Q4

REPORT INFORMATION
  Report Type: Spontaneous
  Country: DK (occurrence: DK)
  Receive Date: 20131029
  Receipt Date: 20131126
  Transmission Date: 20140711
  Serious: Yes (Hospitalization)
  Sender: FDA-Public Use
  Company Number: DK-ELI_LILLY_AND_COMPANY-DK201310006317

PATIENT
  Age: 71 Year
  Sex: Female

DRUGS (7)
  1. EFIENT [Suspect]
     Indication: STENT PLACEMENT
     Dosage: 60 MG, SINGLE
     Route: 048
     Dates: start: 20110610, end: 20110610
  2. EFIENT [Suspect]
     Dosage: 10 MG, QD
     Route: 048
     Dates: start: 20110611
  3. ASPIRIN [Concomitant]
     Dosage: UNK
  4. MAGNYL [Concomitant]
     Dosage: 75 MG, UNK
     Route: 048
  5. SELO-ZOK [Concomitant]
     Dosage: 25 MG, UNK
     Route: 048
  6. ZARATOR                            /01326101/ [Concomitant]
     Dosage: 40 MG, UNK
     Route: 048
  7. EZETROL [Concomitant]
     Dosage: 10 MG, UNK
     Route: 048

REACTIONS (1)
  - Angina pectoris [Recovered/Resolved]
